FAERS Safety Report 24912556 (Version 3)
Quarter: 2025Q1

REPORT INFORMATION
  Report Type: Spontaneous
  Country: CA (occurrence: CA)
  Receive Date: 20250131
  Receipt Date: 20250321
  Transmission Date: 20250408
  Serious: Yes (Death, Life-Threatening, Hospitalization, Disabling, Congenital Anomaly, Other)
  Sender: NOVARTIS
  Company Number: CA-002147023-NVSC2025CA016045

PATIENT
  Age: 40 Year
  Sex: Female
  Weight: 96 kg

DRUGS (205)
  1. LEFLUNOMIDE [Suspect]
     Active Substance: LEFLUNOMIDE
     Indication: Rheumatoid arthritis
     Dosage: 10 MG, QD
     Route: 065
  2. LEFLUNOMIDE [Suspect]
     Active Substance: LEFLUNOMIDE
     Dosage: 20 MG, QD
     Route: 065
  3. LEFLUNOMIDE [Suspect]
     Active Substance: LEFLUNOMIDE
     Route: 048
  4. DICLOFENAC [Suspect]
     Active Substance: DICLOFENAC
     Indication: Product used for unknown indication
     Route: 065
  5. DICLOFENAC [Suspect]
     Active Substance: DICLOFENAC
     Route: 058
  6. DICLOFENAC [Suspect]
     Active Substance: DICLOFENAC
     Route: 065
  7. DICLOFENAC SODIUM [Suspect]
     Active Substance: DICLOFENAC SODIUM
     Indication: Product used for unknown indication
     Route: 065
  8. DICLOFENAC SODIUM [Suspect]
     Active Substance: DICLOFENAC SODIUM
     Route: 065
  9. ALENDRONIC ACID [Suspect]
     Active Substance: ALENDRONIC ACID
     Indication: Rheumatoid arthritis
     Route: 065
  10. ALENDRONIC ACID [Suspect]
     Active Substance: ALENDRONIC ACID
     Route: 048
  11. ALENDRONIC ACID [Suspect]
     Active Substance: ALENDRONIC ACID
     Route: 065
  12. ALENDRONIC ACID [Suspect]
     Active Substance: ALENDRONIC ACID
     Route: 016
  13. ALENDRONIC ACID [Suspect]
     Active Substance: ALENDRONIC ACID
     Route: 048
  14. ALENDRONIC ACID [Suspect]
     Active Substance: ALENDRONIC ACID
     Route: 048
  15. AIMOVIG [Suspect]
     Active Substance: ERENUMAB-AOOE
     Indication: Migraine
     Route: 065
  16. AIMOVIG [Suspect]
     Active Substance: ERENUMAB-AOOE
     Route: 065
  17. AIMOVIG [Suspect]
     Active Substance: ERENUMAB-AOOE
     Route: 065
  18. AIMOVIG [Suspect]
     Active Substance: ERENUMAB-AOOE
     Route: 065
  19. COSENTYX [Suspect]
     Active Substance: SECUKINUMAB
     Indication: Psoriatic arthropathy
     Route: 065
  20. COSENTYX [Suspect]
     Active Substance: SECUKINUMAB
     Indication: Rheumatoid arthritis
     Route: 065
  21. COSENTYX [Suspect]
     Active Substance: SECUKINUMAB
     Indication: Product used for unknown indication
     Route: 065
  22. OXYCODONE [Suspect]
     Active Substance: OXYCODONE
     Indication: Product used for unknown indication
     Route: 065
  23. CANDESARTAN [Suspect]
     Active Substance: CANDESARTAN
     Indication: Product used for unknown indication
     Route: 048
  24. RITUXIMAB [Suspect]
     Active Substance: RITUXIMAB
     Indication: Rheumatoid arthritis
     Route: 065
  25. RITUXIMAB [Suspect]
     Active Substance: RITUXIMAB
     Route: 065
  26. RITUXIMAB [Suspect]
     Active Substance: RITUXIMAB
     Route: 065
  27. RITUXIMAB [Suspect]
     Active Substance: RITUXIMAB
     Route: 065
  28. RITUXIMAB [Suspect]
     Active Substance: RITUXIMAB
     Route: 065
  29. RITUXIMAB [Suspect]
     Active Substance: RITUXIMAB
     Route: 065
  30. RITUXIMAB [Suspect]
     Active Substance: RITUXIMAB
     Route: 065
  31. RITUXIMAB [Suspect]
     Active Substance: RITUXIMAB
     Route: 065
  32. RITUXIMAB [Suspect]
     Active Substance: RITUXIMAB
     Route: 065
  33. RITUXIMAB [Suspect]
     Active Substance: RITUXIMAB
     Dosage: 1 G, BID
     Route: 065
  34. RITUXIMAB [Suspect]
     Active Substance: RITUXIMAB
     Route: 065
  35. RITUXIMAB [Suspect]
     Active Substance: RITUXIMAB
     Route: 065
  36. RITUXIMAB [Suspect]
     Active Substance: RITUXIMAB
     Route: 065
  37. RITUXIMAB [Suspect]
     Active Substance: RITUXIMAB
     Route: 065
  38. RITUXIMAB [Suspect]
     Active Substance: RITUXIMAB
     Route: 065
  39. RITUXIMAB [Suspect]
     Active Substance: RITUXIMAB
     Route: 065
  40. RITUXIMAB [Suspect]
     Active Substance: RITUXIMAB
     Route: 065
  41. RITUXIMAB [Suspect]
     Active Substance: RITUXIMAB
     Route: 065
  42. RITUXIMAB [Suspect]
     Active Substance: RITUXIMAB
     Route: 065
  43. RITUXIMAB [Suspect]
     Active Substance: RITUXIMAB
     Dosage: 2 G, BID
     Route: 065
  44. RITUXIMAB [Suspect]
     Active Substance: RITUXIMAB
     Dosage: 1 G, BID
     Route: 040
  45. ADALIMUMAB [Suspect]
     Active Substance: ADALIMUMAB
     Indication: Rheumatoid arthritis
     Route: 065
  46. ADALIMUMAB [Suspect]
     Active Substance: ADALIMUMAB
     Route: 058
  47. ADALIMUMAB [Suspect]
     Active Substance: ADALIMUMAB
     Route: 058
  48. OXYCODONE TEREPHTHALATE [Suspect]
     Active Substance: OXYCODONE TEREPHTHALATE
     Indication: Product used for unknown indication
     Route: 065
  49. PERIOGARD [Suspect]
     Active Substance: CHLORHEXIDINE GLUCONATE
     Indication: Product used for unknown indication
     Route: 065
  50. PHTHALYLSULFATHIAZOLE [Suspect]
     Active Substance: PHTHALYLSULFATHIAZOLE
     Indication: Rheumatoid arthritis
     Route: 065
  51. PHTHALYLSULFATHIAZOLE [Suspect]
     Active Substance: PHTHALYLSULFATHIAZOLE
     Dosage: 500 MG, QD
     Route: 065
  52. PHTHALYLSULFATHIAZOLE [Suspect]
     Active Substance: PHTHALYLSULFATHIAZOLE
     Route: 065
  53. PHTHALYLSULFATHIAZOLE [Suspect]
     Active Substance: PHTHALYLSULFATHIAZOLE
     Route: 065
  54. PHTHALYLSULFATHIAZOLE [Suspect]
     Active Substance: PHTHALYLSULFATHIAZOLE
     Route: 065
  55. PHTHALYLSULFATHIAZOLE [Suspect]
     Active Substance: PHTHALYLSULFATHIAZOLE
     Route: 065
  56. PLAQUENIL [Suspect]
     Active Substance: HYDROXYCHLOROQUINE SULFATE
     Indication: Rheumatoid arthritis
     Route: 065
  57. PREDNISONE [Suspect]
     Active Substance: PREDNISONE
     Indication: Rheumatoid arthritis
     Route: 065
  58. PREDNISONE [Suspect]
     Active Substance: PREDNISONE
     Route: 065
  59. PREDNISONE [Suspect]
     Active Substance: PREDNISONE
     Route: 065
  60. PREDNISONE [Suspect]
     Active Substance: PREDNISONE
     Route: 065
  61. PREDNISONE [Suspect]
     Active Substance: PREDNISONE
     Route: 065
  62. PSEUDOEPHEDRINE [Suspect]
     Active Substance: PSEUDOEPHEDRINE
     Indication: Rheumatoid arthritis
     Route: 065
  63. PSEUDOEPHEDRINE [Suspect]
     Active Substance: PSEUDOEPHEDRINE
     Route: 065
  64. PSEUDOEPHEDRINE [Suspect]
     Active Substance: PSEUDOEPHEDRINE
     Route: 065
  65. PSEUDOEPHEDRINE [Suspect]
     Active Substance: PSEUDOEPHEDRINE
     Route: 065
  66. PSEUDOEPHEDRINE [Suspect]
     Active Substance: PSEUDOEPHEDRINE
     Route: 065
  67. PSEUDOEPHEDRINE HYDROCHLORIDE [Suspect]
     Active Substance: PSEUDOEPHEDRINE HYDROCHLORIDE
     Indication: Rheumatoid arthritis
     Route: 065
  68. CAFFEINE [Suspect]
     Active Substance: CAFFEINE
     Indication: Rheumatoid arthritis
     Route: 065
  69. CAFFEINE [Suspect]
     Active Substance: CAFFEINE
     Route: 065
  70. CAFFEINE [Suspect]
     Active Substance: CAFFEINE
     Route: 065
  71. CAFFEINE [Suspect]
     Active Substance: CAFFEINE
     Route: 065
  72. CAFFEINE [Suspect]
     Active Substance: CAFFEINE
     Route: 065
  73. RAMIPRIL [Suspect]
     Active Substance: RAMIPRIL
     Indication: Rheumatoid arthritis
     Route: 065
  74. RAMIPRIL [Suspect]
     Active Substance: RAMIPRIL
     Route: 065
  75. RAMIPRIL [Suspect]
     Active Substance: RAMIPRIL
     Route: 065
  76. RANITIDINE [Suspect]
     Active Substance: RANITIDINE
     Indication: Product used for unknown indication
     Route: 065
  77. CETIRIZINE HYDROCHLORIDE\PSEUDOEPHEDRINE HYDROCHLORIDE [Suspect]
     Active Substance: CETIRIZINE HYDROCHLORIDE\PSEUDOEPHEDRINE HYDROCHLORIDE
     Indication: Rheumatoid arthritis
     Route: 065
  78. CETIRIZINE HYDROCHLORIDE\PSEUDOEPHEDRINE HYDROCHLORIDE [Suspect]
     Active Substance: CETIRIZINE HYDROCHLORIDE\PSEUDOEPHEDRINE HYDROCHLORIDE
     Route: 065
  79. CETIRIZINE HYDROCHLORIDE\PSEUDOEPHEDRINE HYDROCHLORIDE [Suspect]
     Active Substance: CETIRIZINE HYDROCHLORIDE\PSEUDOEPHEDRINE HYDROCHLORIDE
     Route: 065
  80. CETIRIZINE HYDROCHLORIDE\PSEUDOEPHEDRINE HYDROCHLORIDE [Suspect]
     Active Substance: CETIRIZINE HYDROCHLORIDE\PSEUDOEPHEDRINE HYDROCHLORIDE
     Route: 065
  81. CETIRIZINE HYDROCHLORIDE\PSEUDOEPHEDRINE HYDROCHLORIDE [Suspect]
     Active Substance: CETIRIZINE HYDROCHLORIDE\PSEUDOEPHEDRINE HYDROCHLORIDE
     Route: 065
  82. CETIRIZINE HYDROCHLORIDE\PSEUDOEPHEDRINE HYDROCHLORIDE [Suspect]
     Active Substance: CETIRIZINE HYDROCHLORIDE\PSEUDOEPHEDRINE HYDROCHLORIDE
     Route: 065
  83. CETIRIZINE HYDROCHLORIDE\PSEUDOEPHEDRINE HYDROCHLORIDE [Suspect]
     Active Substance: CETIRIZINE HYDROCHLORIDE\PSEUDOEPHEDRINE HYDROCHLORIDE
     Route: 065
  84. CETIRIZINE HYDROCHLORIDE\PSEUDOEPHEDRINE HYDROCHLORIDE [Suspect]
     Active Substance: CETIRIZINE HYDROCHLORIDE\PSEUDOEPHEDRINE HYDROCHLORIDE
     Route: 065
  85. REMICADE [Suspect]
     Active Substance: INFLIXIMAB
     Indication: Rheumatoid arthritis
     Route: 050
  86. RIBOFLAVIN [Suspect]
     Active Substance: RIBOFLAVIN
     Indication: Product used for unknown indication
     Route: 065
  87. SULFASALAZINE [Suspect]
     Active Substance: SULFASALAZINE
     Indication: Rheumatoid arthritis
     Route: 065
  88. SULFASALAZINE [Suspect]
     Active Substance: SULFASALAZINE
     Route: 065
  89. ATOMOXETINE [Suspect]
     Active Substance: ATOMOXETINE
     Indication: Migraine
     Route: 065
  90. ATOMOXETINE [Suspect]
     Active Substance: ATOMOXETINE
     Route: 065
  91. ATOMOXETINE [Suspect]
     Active Substance: ATOMOXETINE
     Route: 065
  92. SIMPONI [Suspect]
     Active Substance: GOLIMUMAB
     Indication: Rheumatoid arthritis
     Route: 058
  93. SIMPONI [Suspect]
     Active Substance: GOLIMUMAB
     Indication: Prostatic specific antigen
     Route: 058
  94. SIMPONI [Suspect]
     Active Substance: GOLIMUMAB
     Route: 058
  95. SIMPONI [Suspect]
     Active Substance: GOLIMUMAB
     Route: 058
  96. SIMPONI [Suspect]
     Active Substance: GOLIMUMAB
     Route: 058
  97. SIRUKUMAB [Suspect]
     Active Substance: SIRUKUMAB
     Indication: Product used for unknown indication
     Route: 065
  98. SIRUKUMAB [Suspect]
     Active Substance: SIRUKUMAB
     Route: 065
  99. SIRUKUMAB [Suspect]
     Active Substance: SIRUKUMAB
     Route: 065
  100. SIRUKUMAB [Suspect]
     Active Substance: SIRUKUMAB
     Route: 065
  101. GOLD SODIUM THIOMALATE [Suspect]
     Active Substance: GOLD SODIUM THIOMALATE
     Indication: Product used for unknown indication
     Route: 065
  102. GOLD SODIUM THIOMALATE [Suspect]
     Active Substance: GOLD SODIUM THIOMALATE
     Route: 065
  103. GOLD SODIUM THIOMALATE [Suspect]
     Active Substance: GOLD SODIUM THIOMALATE
     Route: 058
  104. STELARA [Suspect]
     Active Substance: USTEKINUMAB
     Indication: Product used for unknown indication
     Route: 065
  105. STELARA [Suspect]
     Active Substance: USTEKINUMAB
     Route: 058
  106. SULFAMETHOXAZOLE\TRIMETHOPRIM [Suspect]
     Active Substance: SULFAMETHOXAZOLE\TRIMETHOPRIM
     Indication: Rheumatoid arthritis
     Route: 065
  107. SULFASALAZINE [Suspect]
     Active Substance: SULFASALAZINE
     Indication: Rheumatoid arthritis
     Route: 065
  108. SULFASALAZINE [Suspect]
     Active Substance: SULFASALAZINE
     Route: 065
  109. SULFASALAZINE [Suspect]
     Active Substance: SULFASALAZINE
     Route: 065
  110. SULFASALAZINE [Suspect]
     Active Substance: SULFASALAZINE
     Route: 065
  111. SULFASALAZINE [Suspect]
     Active Substance: SULFASALAZINE
     Dosage: 300 MG, QD
     Route: 065
  112. SULFASALAZINE [Suspect]
     Active Substance: SULFASALAZINE
     Dosage: 1 G, QD
     Route: 065
  113. SULFASALAZINE [Suspect]
     Active Substance: SULFASALAZINE
     Route: 065
  114. SULFASALAZINE [Suspect]
     Active Substance: SULFASALAZINE
     Dosage: 1 G, BID
     Route: 065
  115. SULFASALAZINE [Suspect]
     Active Substance: SULFASALAZINE
     Dosage: 2 G, BID
     Route: 065
  116. SULFASALAZINE [Suspect]
     Active Substance: SULFASALAZINE
     Route: 065
  117. SULFASALAZINE [Suspect]
     Active Substance: SULFASALAZINE
     Route: 058
  118. SULFASALAZINE [Suspect]
     Active Substance: SULFASALAZINE
     Dosage: 2 DOSAGE FORM, QD
     Route: 048
  119. SULFASALAZINE [Suspect]
     Active Substance: SULFASALAZINE
     Dosage: 1000 MG, QD
     Route: 048
  120. SULFASALAZINE [Suspect]
     Active Substance: SULFASALAZINE
     Dosage: 200 MG, QD
     Route: 048
  121. SULFASALAZINE [Suspect]
     Active Substance: SULFASALAZINE
     Route: 058
  122. SULFASALAZINE [Suspect]
     Active Substance: SULFASALAZINE
     Dosage: 2 G, QD
     Route: 058
  123. SULFASALAZINE [Suspect]
     Active Substance: SULFASALAZINE
     Route: 065
  124. SULFASALAZINE [Suspect]
     Active Substance: SULFASALAZINE
     Route: 065
  125. SULFASALAZINE [Suspect]
     Active Substance: SULFASALAZINE
     Dosage: 500 MG, QD
     Route: 058
  126. SULFASALAZINE [Suspect]
     Active Substance: SULFASALAZINE
     Route: 058
  127. SULFASALAZINE [Suspect]
     Active Substance: SULFASALAZINE
     Dosage: 4 MG, QD
     Route: 058
  128. SULFASALAZINE [Suspect]
     Active Substance: SULFASALAZINE
     Dosage: 100 MG, QD
     Route: 048
  129. SULFASALAZINE [Suspect]
     Active Substance: SULFASALAZINE
     Route: 058
  130. SULFASALAZINE [Suspect]
     Active Substance: SULFASALAZINE
     Dosage: 2 DOSAGE FORM, QD
     Route: 065
  131. SULFASALAZINE [Suspect]
     Active Substance: SULFASALAZINE
     Dosage: 2 DOSAGE FORM, QD
     Route: 048
  132. SULFASALAZINE [Suspect]
     Active Substance: SULFASALAZINE
     Route: 016
  133. SULFASALAZINE [Suspect]
     Active Substance: SULFASALAZINE
     Route: 048
  134. SULFASALAZINE [Suspect]
     Active Substance: SULFASALAZINE
     Dosage: 300 MG, QD
     Route: 065
  135. SULFASALAZINE [Suspect]
     Active Substance: SULFASALAZINE
     Dosage: 1 DOSAGE FORM, QD
     Route: 048
  136. TRAMADOL HYDROCHLORIDE [Suspect]
     Active Substance: TRAMADOL HYDROCHLORIDE
     Indication: Product used for unknown indication
     Route: 065
  137. XELJANZ [Suspect]
     Active Substance: TOFACITINIB CITRATE
     Indication: Rheumatoid arthritis
     Dosage: 5 MG, QD
     Route: 065
  138. XELJANZ [Suspect]
     Active Substance: TOFACITINIB CITRATE
     Dosage: 10 MG, QD
     Route: 065
  139. XELJANZ [Suspect]
     Active Substance: TOFACITINIB CITRATE
     Dosage: 20 MG, QD
     Route: 048
  140. XELJANZ [Suspect]
     Active Substance: TOFACITINIB CITRATE
     Dosage: 1 MG, BID
     Route: 065
  141. XELJANZ [Suspect]
     Active Substance: TOFACITINIB CITRATE
     Dosage: 3 MG, QD
     Route: 065
  142. PREDNISONE [Suspect]
     Active Substance: PREDNISONE
     Indication: Rheumatoid arthritis
     Route: 048
  143. PREDNISONE [Suspect]
     Active Substance: PREDNISONE
     Route: 048
  144. PREDNISONE [Suspect]
     Active Substance: PREDNISONE
     Dosage: 20 MG, QD
     Route: 048
  145. PREDNISONE [Suspect]
     Active Substance: PREDNISONE
     Dosage: 5 MG, QD
     Route: 048
  146. PREDNISONE [Suspect]
     Active Substance: PREDNISONE
     Route: 048
  147. PREDNISONE [Suspect]
     Active Substance: PREDNISONE
     Route: 048
  148. CELECOXIB [Suspect]
     Active Substance: CELECOXIB
     Indication: Product used for unknown indication
     Route: 065
  149. CELECOXIB [Suspect]
     Active Substance: CELECOXIB
     Route: 065
  150. CELECOXIB [Suspect]
     Active Substance: CELECOXIB
     Route: 065
  151. CELECOXIB [Suspect]
     Active Substance: CELECOXIB
     Route: 065
  152. CELECOXIB [Suspect]
     Active Substance: CELECOXIB
     Dosage: 1 DOSAGE FORM, QD
     Route: 048
  153. CELECOXIB [Suspect]
     Active Substance: CELECOXIB
     Dosage: 2 DOSAGE FORM, QD
     Route: 048
  154. CERTOLIZUMAB PEGOL [Suspect]
     Active Substance: CERTOLIZUMAB PEGOL
     Indication: Product used for unknown indication
     Route: 065
  155. CERTOLIZUMAB PEGOL [Suspect]
     Active Substance: CERTOLIZUMAB PEGOL
     Route: 065
  156. CERTOLIZUMAB PEGOL [Suspect]
     Active Substance: CERTOLIZUMAB PEGOL
     Route: 058
  157. CERTOLIZUMAB PEGOL [Suspect]
     Active Substance: CERTOLIZUMAB PEGOL
     Route: 058
  158. HUMIRA [Suspect]
     Active Substance: ADALIMUMAB
     Indication: Rheumatoid arthritis
     Route: 058
  159. HUMIRA [Suspect]
     Active Substance: ADALIMUMAB
     Route: 065
  160. HUMIRA [Suspect]
     Active Substance: ADALIMUMAB
     Route: 058
  161. HUMIRA [Suspect]
     Active Substance: ADALIMUMAB
     Route: 058
  162. HUMIRA [Suspect]
     Active Substance: ADALIMUMAB
     Route: 058
  163. DICLOFENAC SODIUM [Suspect]
     Active Substance: DICLOFENAC SODIUM
     Indication: Product used for unknown indication
     Route: 065
  164. ACETAMINOPHEN [Suspect]
     Active Substance: ACETAMINOPHEN
     Indication: Rheumatoid arthritis
     Route: 065
  165. ACETAMINOPHEN [Suspect]
     Active Substance: ACETAMINOPHEN
     Route: 065
  166. ACETAMINOPHEN AND CODEINE [Suspect]
     Active Substance: ACETAMINOPHEN\CODEINE PHOSPHATE
     Indication: Product used for unknown indication
     Route: 065
  167. ACETAMINOPHEN\TRAMADOL HYDROCHLORIDE [Suspect]
     Active Substance: ACETAMINOPHEN\TRAMADOL HYDROCHLORIDE
     Indication: Product used for unknown indication
     Route: 065
  168. ACTEMRA [Suspect]
     Active Substance: TOCILIZUMAB
     Indication: Rheumatoid arthritis
     Route: 065
  169. ACTEMRA [Suspect]
     Active Substance: TOCILIZUMAB
     Route: 058
  170. ACTEMRA [Suspect]
     Active Substance: TOCILIZUMAB
     Route: 065
  171. ACTEMRA [Suspect]
     Active Substance: TOCILIZUMAB
     Dosage: 25 MG, QW
     Route: 058
  172. ACTEMRA [Suspect]
     Active Substance: TOCILIZUMAB
     Route: 058
  173. ACTEMRA [Suspect]
     Active Substance: TOCILIZUMAB
     Route: 058
  174. ACTEMRA [Suspect]
     Active Substance: TOCILIZUMAB
     Route: 058
  175. ACTEMRA [Suspect]
     Active Substance: TOCILIZUMAB
     Route: 065
  176. ACTEMRA [Suspect]
     Active Substance: TOCILIZUMAB
     Route: 016
  177. ACTEMRA [Suspect]
     Active Substance: TOCILIZUMAB
     Route: 058
  178. ACTEMRA [Suspect]
     Active Substance: TOCILIZUMAB
     Route: 058
  179. ACTEMRA [Suspect]
     Active Substance: TOCILIZUMAB
     Route: 058
  180. ACTEMRA [Suspect]
     Active Substance: TOCILIZUMAB
     Route: 058
  181. ACTEMRA [Suspect]
     Active Substance: TOCILIZUMAB
     Route: 058
  182. ACTEMRA [Suspect]
     Active Substance: TOCILIZUMAB
     Route: 058
  183. ACTEMRA [Suspect]
     Active Substance: TOCILIZUMAB
     Route: 040
  184. ACTEMRA [Suspect]
     Active Substance: TOCILIZUMAB
     Route: 065
  185. LEFLUNOMIDE [Suspect]
     Active Substance: LEFLUNOMIDE
     Indication: Rheumatoid arthritis
     Route: 048
  186. LEFLUNOMIDE [Suspect]
     Active Substance: LEFLUNOMIDE
     Route: 065
  187. LEFLUNOMIDE [Suspect]
     Active Substance: LEFLUNOMIDE
     Route: 065
  188. LEFLUNOMIDE [Suspect]
     Active Substance: LEFLUNOMIDE
     Route: 065
  189. ENBREL [Suspect]
     Active Substance: ETANERCEPT
     Indication: Rheumatoid arthritis
     Dosage: 10 MG, QW
     Route: 058
  190. ENBREL [Suspect]
     Active Substance: ETANERCEPT
     Route: 058
  191. ENBREL [Suspect]
     Active Substance: ETANERCEPT
     Route: 058
  192. ENBREL [Suspect]
     Active Substance: ETANERCEPT
     Route: 058
  193. ENBREL [Suspect]
     Active Substance: ETANERCEPT
     Route: 058
  194. ENBREL [Suspect]
     Active Substance: ETANERCEPT
     Route: 058
  195. ENBREL [Suspect]
     Active Substance: ETANERCEPT
     Route: 058
  196. ENBREL [Suspect]
     Active Substance: ETANERCEPT
     Dosage: 50 MG, QW
     Route: 058
  197. ENBREL [Suspect]
     Active Substance: ETANERCEPT
     Route: 058
  198. ENBREL [Suspect]
     Active Substance: ETANERCEPT
     Route: 058
  199. ENBREL [Suspect]
     Active Substance: ETANERCEPT
     Dosage: 10 MG, QW
     Route: 065
  200. HYDROCORTISONE SODIUM SUCCINATE [Suspect]
     Active Substance: HYDROCORTISONE SODIUM SUCCINATE
     Indication: Product used for unknown indication
     Route: 065
  201. INFLIXIMAB [Suspect]
     Active Substance: INFLIXIMAB
     Indication: Rheumatoid arthritis
     Route: 040
  202. INFLIXIMAB [Suspect]
     Active Substance: INFLIXIMAB
     Route: 040
  203. METHOTREXATE SODIUM [Suspect]
     Active Substance: METHOTREXATE SODIUM
     Indication: Rheumatoid arthritis
     Route: 048
  204. PHENYLEPHRINE HYDROCHLORIDE [Suspect]
     Active Substance: PHENYLEPHRINE HYDROCHLORIDE
     Indication: Rheumatoid arthritis
     Route: 030
  205. ERENUMAB-AOOE [Concomitant]
     Active Substance: ERENUMAB-AOOE
     Indication: Migraine
     Route: 065

REACTIONS (40)
  - Hepatic enzyme increased [Fatal]
  - Headache [Fatal]
  - Hypercholesterolaemia [Fatal]
  - Musculoskeletal stiffness [Fatal]
  - Night sweats [Fatal]
  - Condition aggravated [Fatal]
  - Neck pain [Fatal]
  - Musculoskeletal pain [Fatal]
  - Sleep disorder [Fatal]
  - Impaired healing [Fatal]
  - Arthralgia [Fatal]
  - Blepharospasm [Fatal]
  - Infusion related reaction [Fatal]
  - Abdominal discomfort [Fatal]
  - Muscle injury [Fatal]
  - Gait inability [Fatal]
  - Abdominal pain upper [Fatal]
  - Joint swelling [Fatal]
  - Alopecia [Fatal]
  - Pain in extremity [Fatal]
  - Synovitis [Fatal]
  - Nail disorder [Fatal]
  - Drug hypersensitivity [Fatal]
  - Obesity [Fatal]
  - Insomnia [Fatal]
  - C-reactive protein abnormal [Fatal]
  - Hypersensitivity [Fatal]
  - Grip strength decreased [Fatal]
  - Finger deformity [Fatal]
  - Diarrhoea [Fatal]
  - Dry mouth [Fatal]
  - Peripheral venous disease [Fatal]
  - Anti-cyclic citrullinated peptide antibody positive [Fatal]
  - Lung disorder [Fatal]
  - Asthenia [Fatal]
  - Gastrointestinal disorder [Fatal]
  - Exposure during pregnancy [Fatal]
  - Maternal exposure timing unspecified [Fatal]
  - Vomiting [Fatal]
  - Product label confusion [Fatal]
